FAERS Safety Report 6878037-2 (Version None)
Quarter: 2010Q3

REPORT INFORMATION
  Report Type: 
  Country: None (occurrence: None)
  Receive Date: 20100727
  Receipt Date: 20070925
  Transmission Date: 20110219
  Serious: Yes (Death, Other)
  Sender: FDA-Public Use
  Company Number: US-PFIZER INC-2006118463

PATIENT
  Sex: Female

DRUGS (2)
  1. CELEBREX [Suspect]
     Indication: OSTEOARTHRITIS
     Route: 048
     Dates: start: 19990811, end: 20040117
  2. VIOXX [Suspect]
     Route: 048
     Dates: start: 20000301, end: 20040117

REACTIONS (1)
  - MYOCARDIAL INFARCTION [None]
